FAERS Safety Report 25443259 (Version 1)
Quarter: 2025Q2

REPORT INFORMATION
  Report Type: Spontaneous
  Country: IN (occurrence: IN)
  Receive Date: 20250617
  Receipt Date: 20250617
  Transmission Date: 20250717
  Serious: Yes (Other)
  Sender: VALIDUS
  Company Number: IN-VALIDUS PHARMACEUTICALS LLC-VLDS-RB-2025-00063

PATIENT
  Age: 12 Year
  Sex: Male

DRUGS (1)
  1. CARBAMAZEPINE [Suspect]
     Active Substance: CARBAMAZEPINE
     Indication: Seizure
     Route: 065

REACTIONS (3)
  - Condition aggravated [Unknown]
  - Muscle twitching [Unknown]
  - Neurological symptom [None]
